FAERS Safety Report 21785552 (Version 3)
Quarter: 2023Q2

REPORT INFORMATION
  Report Type: Spontaneous
  Country: JP (occurrence: JP)
  Receive Date: 20221227
  Receipt Date: 20230413
  Transmission Date: 20230722
  Serious: Yes (Hospitalization, Other)
  Sender: FDA-Public Use
  Company Number: JP-SA-2022SA471675

PATIENT
  Age: 34 Year
  Sex: Female
  Weight: 59 kg

DRUGS (11)
  1. DUPIXENT [Suspect]
     Active Substance: DUPILUMAB
     Indication: Chronic eosinophilic rhinosinusitis
     Dosage: 300 MG, QOW
     Route: 058
     Dates: start: 20220815, end: 20221107
  2. MONTELUKAST SODIUM [Concomitant]
     Active Substance: MONTELUKAST SODIUM
     Indication: Chronic eosinophilic rhinosinusitis
     Dosage: 10 MG, QD
     Route: 048
     Dates: start: 20220815, end: 20221204
  3. CELESTAMINE [Concomitant]
     Active Substance: BETAMETHASONE\DEXCHLORPHENIRAMINE MALEATE
     Indication: Chronic eosinophilic rhinosinusitis
     Dosage: 1 DF, BID
     Route: 048
     Dates: start: 20220815, end: 20221103
  4. LOXOPROFEN SODIUM [Concomitant]
     Active Substance: LOXOPROFEN SODIUM
     Indication: Chronic eosinophilic rhinosinusitis
     Dosage: 60 MG, TID
     Route: 048
     Dates: start: 20221021, end: 20221201
  5. NEXIUM [Concomitant]
     Active Substance: ESOMEPRAZOLE MAGNESIUM
     Indication: Chronic eosinophilic rhinosinusitis
     Dosage: 20 MG, QD
     Route: 048
     Dates: start: 20221021, end: 20221225
  6. PREDNISOLONE [Concomitant]
     Active Substance: PREDNISOLONE
     Indication: Chronic eosinophilic rhinosinusitis
     Dosage: 15 MG ? TAPERING
     Route: 048
     Dates: start: 20221021, end: 20221225
  7. PREDNISOLONE [Concomitant]
     Active Substance: PREDNISOLONE
     Indication: Headache
     Dosage: 20 MG/DAY
     Route: 048
     Dates: start: 20221107
  8. PREDNISOLONE [Concomitant]
     Active Substance: PREDNISOLONE
     Indication: Rhinalgia
     Dosage: 50 MG/DAY
     Route: 048
     Dates: start: 20221226
  9. PREDNISOLONE [Concomitant]
     Active Substance: PREDNISOLONE
     Indication: Swelling of eyelid
  10. PREDNISOLONE [Concomitant]
     Active Substance: PREDNISOLONE
     Indication: Eosinophilic granulomatosis with polyangiitis
  11. FLUTICASONE FUROATE [Concomitant]
     Active Substance: FLUTICASONE FUROATE
     Indication: Chronic eosinophilic rhinosinusitis
     Dosage: 110 UG, QD
     Route: 045
     Dates: start: 20220708, end: 20221008

REACTIONS (9)
  - Headache [Recovering/Resolving]
  - Eosinophilic granulomatosis with polyangiitis [Recovering/Resolving]
  - Rhinalgia [Recovering/Resolving]
  - Hot flush [Unknown]
  - Facial pain [Unknown]
  - Swelling of eyelid [Recovering/Resolving]
  - Erythema of eyelid [Unknown]
  - Bronchospasm [Unknown]
  - Wheezing [Unknown]

NARRATIVE: CASE EVENT DATE: 20221001
